FAERS Safety Report 5361802-0 (Version None)
Quarter: 2007Q2

REPORT INFORMATION
  Report Type: 
  Country: None (occurrence: None)
  Receive Date: 20070619
  Receipt Date: 20070605
  Transmission Date: 20071010
  Serious: Yes (Hospitalization)
  Sender: FDA-Public Use
  Company Number: US-ELI_LILLY_AND_COMPANY-US200705003697

PATIENT
  Age: 58 Year
  Sex: Female
  Weight: 68.027 kg

DRUGS (7)
  1. CYMBALTA [Suspect]
     Indication: PAIN IN EXTREMITY
     Dosage: 30 MG, DAILY (1/D)
     Dates: start: 20070418, end: 20070418
  2. METHADONE HCL [Concomitant]
     Indication: PAIN
     Dosage: 5 MG, 3/D
  3. FEXOFENADINE [Concomitant]
     Dosage: 180 MG, UNK
  4. PREMARIN [Concomitant]
     Dosage: 1.25 MG, UNK
  5. FORADIL [Concomitant]
     Dosage: 12 UG, UNK
  6. FLOVENT [Concomitant]
  7. LISINOPRIL [Concomitant]
     Dosage: 20 MG, UNK

REACTIONS (9)
  - DYSTONIA [None]
  - FEELING ABNORMAL [None]
  - HEART RATE INCREASED [None]
  - HYPERHIDROSIS [None]
  - MALAISE [None]
  - MUSCLE RIGIDITY [None]
  - NAUSEA [None]
  - PULSE ABNORMAL [None]
  - SOMNOLENCE [None]
